FAERS Safety Report 6633851-3 (Version None)
Quarter: 2010Q1

REPORT INFORMATION
  Report Type: 
  Country: None (occurrence: None)
  Receive Date: 20100309
  Receipt Date: 20100224
  Transmission Date: 20100710
  Serious: Yes (Death, Hospitalization, Other)
  Sender: FDA-Public Use
  Company Number: 230335J10BRA

PATIENT
  Age: 53 Year
  Sex: Female

DRUGS (1)
  1. REBIF [Suspect]
     Indication: MULTIPLE SCLEROSIS
     Dosage: 22 MCG, 3 IN 1 WEEKS
     Dates: start: 20020409, end: 20090807

REACTIONS (5)
  - ABASIA [None]
  - ASPIRATION [None]
  - CARDIAC ARREST [None]
  - INCREASED UPPER AIRWAY SECRETION [None]
  - MOVEMENT DISORDER [None]
